FAERS Safety Report 4615450-8 (Version None)
Quarter: 2005Q1

REPORT INFORMATION
  Report Type: 
  Country: None (occurrence: None)
  Receive Date: 20050317
  Receipt Date: 20050307
  Transmission Date: 20050727
  Serious: Yes (Death)
  Sender: FDA-Public Use
  Company Number: 2005037937

PATIENT
  Age: 60 Year
  Sex: Male
  Weight: 125 kg

DRUGS (5)
  1. AMLODIPINE [Suspect]
     Indication: HYPERTENSION
     Dosage: 10 MG (10 MG, 1 IN 1 D), ORAL
     Route: 048
     Dates: end: 20041001
  2. METOPROLOL TARTRATE [Concomitant]
  3. HYDROCHLOROTHIAZIDE [Concomitant]
  4. MOXONIDINE (MOXONIDINE) [Concomitant]
  5. LOSARTAN (LOSARTAN) [Concomitant]

REACTIONS (2)
  - CARDIAC FAILURE [None]
  - SUDDEN DEATH [None]
